FAERS Safety Report 11424272 (Version 1)
Quarter: 2015Q3

REPORT INFORMATION
  Report Type: Spontaneous
  Country: KR (occurrence: KR)
  Receive Date: 20150827
  Receipt Date: 20150827
  Transmission Date: 20151125
  Serious: Yes (Hospitalization, Other)
  Sender: FDA-Public Use
  Company Number: KR-ABBVIE-15P-090-1452399-00

PATIENT
  Sex: Male

DRUGS (1)
  1. DEPAKINE CHRONO [Suspect]
     Active Substance: VALPROATE SODIUM
     Indication: PRODUCT USED FOR UNKNOWN INDICATION
     Dosage: EXTENDED RELEASE
     Route: 048

REACTIONS (4)
  - Poor quality drug administered [Not Recovered/Not Resolved]
  - Product quality issue [Not Recovered/Not Resolved]
  - Neoplasm malignant [Not Recovered/Not Resolved]
  - Condition aggravated [Not Recovered/Not Resolved]
